FAERS Safety Report 9660998 (Version 1)
Quarter: 2013Q4

REPORT INFORMATION
  Report Type: Spontaneous
  Country: GB (occurrence: GB)
  Receive Date: 20131031
  Receipt Date: 20131031
  Transmission Date: 20140711
  Serious: Yes (Hospitalization)
  Sender: FDA-Public Use
  Company Number: GB-WATSON-2013-19918

PATIENT
  Age: 82 Year
  Sex: Male
  Weight: 67 kg

DRUGS (17)
  1. RAMIPRIL (UNKNOWN) [Suspect]
     Indication: HYPERTENSION
     Dosage: 5 MG, DAILY
     Route: 048
     Dates: end: 20130927
  2. PEPTAC                             /01521901/ [Concomitant]
     Indication: DYSPEPSIA
     Dosage: 10 ML, QID; 10 ML FOUR TIMES DAILY (AFTER MEALS AND NIGHT), AS REQUIRED
     Route: 048
  3. AMOXICILLIN [Concomitant]
     Indication: URINARY TRACT INFECTION
     Dosage: 500 MG, TID; INR CLINIC AWARE
     Route: 048
     Dates: end: 20130808
  4. CLENIL MODULITE [Concomitant]
     Indication: PRODUCT USED FOR UNKNOWN INDICATION
     Dosage: 400 MICROGRAMS, TWICE DAILY
     Route: 055
  5. BISOPROLOL [Concomitant]
     Indication: PRODUCT USED FOR UNKNOWN INDICATION
     Dosage: 7.5 MG, DAILY; EVERY MORNING.
     Route: 048
  6. BUMETANIDE [Concomitant]
     Indication: PRODUCT USED FOR UNKNOWN INDICATION
     Dosage: 1 MG, BID; MORNING AND EVENING.
     Route: 048
  7. CODEINE PHOSPHATE [Concomitant]
     Indication: PAIN
     Dosage: 30 MG, QID
     Route: 048
  8. DONEPEZIL [Concomitant]
     Indication: PRODUCT USED FOR UNKNOWN INDICATION
     Dosage: 10 MG, DAILY; ONE AT NIGHT.
     Route: 048
  9. FERROUS FUMARATE [Concomitant]
     Indication: PRODUCT USED FOR UNKNOWN INDICATION
     Dosage: 140 MG, TID; MORNING, LUNCHTIME AND EVENING.
     Route: 048
  10. FLUOXETINE [Concomitant]
     Indication: PRODUCT USED FOR UNKNOWN INDICATION
     Dosage: 20 MG, DAILY; EVERY MORNING.
     Route: 048
  11. LANSOPRAZOLE [Concomitant]
     Indication: PRODUCT USED FOR UNKNOWN INDICATION
     Dosage: 30 MG, DAILY; EVERY MORNING.
     Route: 048
  12. PARACETAMOL [Concomitant]
     Indication: PAIN
     Dosage: 1 G, QID; 1 GRAM, FOUR TIMES A DAY WHEN REQUIRED
     Route: 048
  13. RAMIPRIL [Concomitant]
     Indication: PRODUCT USED FOR UNKNOWN INDICATION
     Dosage: 5 MG, DAILY; EVERY MORNING.
     Route: 048
  14. SALBUTAMOL [Concomitant]
     Indication: WHEEZING
     Dosage: 200 ?G (MICROGRAMS), QID; FOUR TIMES A DAY WHEN REQUIRED
     Route: 055
  15. SIMVASTATIN [Concomitant]
     Indication: PRODUCT USED FOR UNKNOWN INDICATION
     Dosage: 40 MG, DAILY; AT NIGHT.
     Route: 048
  16. SPIRONOLACTONE [Concomitant]
     Indication: PRODUCT USED FOR UNKNOWN INDICATION
     Dosage: 25 MG, DAILY; EVERY MORNING.
     Route: 048
  17. WARFARIN [Concomitant]
     Indication: ATRIAL FIBRILLATION
     Dosage: ONCE DAILY; 1 MG AND 3 MG TABLETS
     Route: 048

REACTIONS (2)
  - Renal failure acute [Recovered/Resolved]
  - Dehydration [Recovered/Resolved]
